FAERS Safety Report 15589355 (Version 2)
Quarter: 2018Q4

REPORT INFORMATION
  Report Type: Spontaneous
  Country: IL (occurrence: IL)
  Receive Date: 20181106
  Receipt Date: 20181113
  Transmission Date: 20190205
  Serious: Yes (Other)
  Sender: FDA-Public Use
  Company Number: IL-TEVA-2018-IL-972959

PATIENT
  Age: 61 Year
  Sex: Female

DRUGS (1)
  1. OXALIPLATIN TEVA [Suspect]
     Active Substance: OXALIPLATIN
     Route: 065

REACTIONS (3)
  - Paraesthesia [Unknown]
  - Discomfort [Unknown]
  - Dyspnoea [Unknown]
